FAERS Safety Report 5536396-7 (Version None)
Quarter: 2007Q4

REPORT INFORMATION
  Report Type: 
  Country: None (occurrence: None)
  Receive Date: 20071204
  Receipt Date: 20071121
  Transmission Date: 20080405
  Serious: Yes (Death, Hospitalization)
  Sender: FDA-Public Use
  Company Number: GXKR2007ES10026

PATIENT
  Age: 64 Year
  Sex: Male

DRUGS (7)
  1. DEFLAZACORTE (NGX)(DEFLAZACORTE) UNKNOWN [Suspect]
     Indication: CHRONIC OBSTRUCTIVE PULMONARY DISEASE
     Dosage: 45 MG, QD, ORAL
     Route: 048
  2. METHYLPREDNISOLONE [Suspect]
     Indication: LUNG INFILTRATION
     Dosage: 60 MG, TID, INTRAVENOUS
     Route: 042
  3. AMOXICILLIN W/CLAVULANIC ACID (AMOXICILLIN, CLAVULANIC ACID) [Concomitant]
  4. CEFTRIAXONE [Concomitant]
  5. LEVOFLOXACIN [Concomitant]
  6. VORICONAZOLE (VORICONAZOLE) [Concomitant]
  7. IMIPENEM (IMIPENEM) [Concomitant]

REACTIONS (2)
  - BRONCHOPULMONARY ASPERGILLOSIS [None]
  - PSEUDOMONAS INFECTION [None]
